FAERS Safety Report 17565347 (Version 1)
Quarter: 2020Q1

REPORT INFORMATION
  Report Type: Spontaneous
  Country: US (occurrence: US)
  Receive Date: 20200313
  Receipt Date: 20200313
  Transmission Date: 20200409
  Serious: Yes (Death)
  Sender: FDA-Public Use
  Company Number: None

PATIENT
  Age: 57 Year
  Sex: Female

DRUGS (19)
  1. CYCLOBENZAPR [Concomitant]
     Active Substance: CYCLOBENZAPRINE
  2. ONDANSETRON [Concomitant]
     Active Substance: ONDANSETRON
  3. DULOXETINE. [Concomitant]
     Active Substance: DULOXETINE
  4. PROMETHAZINE [Concomitant]
     Active Substance: PROMETHAZINE HYDROCHLORIDE
  5. XARELTO [Concomitant]
     Active Substance: RIVAROXABAN
  6. OXYCODONE AND ACETAMINOPHEN [Concomitant]
     Active Substance: ACETAMINOPHEN\OXYCODONE HYDROCHLORIDE
  7. PROCHLORPER [Concomitant]
  8. CARBAMAZEPIN [Concomitant]
     Active Substance: CARBAMAZEPINE
  9. LEVETIRACETA [Concomitant]
  10. POT CL MICRO [Concomitant]
  11. FAMOTIDINE. [Concomitant]
     Active Substance: FAMOTIDINE
  12. FENTANYL. [Concomitant]
     Active Substance: FENTANYL
  13. MECLIZINE [Concomitant]
     Active Substance: MECLIZINE HYDROCHLORIDE
  14. MORPHINE SUL [Concomitant]
     Active Substance: MORPHINE SULFATE
  15. KISQALI [Suspect]
     Active Substance: RIBOCICLIB
     Indication: BREAST CANCER FEMALE
     Route: 048
     Dates: start: 20200227, end: 20200312
  16. DEXAMETHASON [Concomitant]
     Active Substance: DEXAMETHASONE
  17. ENOXAPARIN [Concomitant]
     Active Substance: ENOXAPARIN
  18. LORAZEPAM. [Concomitant]
     Active Substance: LORAZEPAM
  19. VERZENIO [Concomitant]
     Active Substance: ABEMACICLIB

REACTIONS (1)
  - Death [None]

NARRATIVE: CASE EVENT DATE: 20200312
